FAERS Safety Report 13339906 (Version 1)
Quarter: 2017Q1

REPORT INFORMATION
  Report Type: Spontaneous
  Country: US (occurrence: US)
  Receive Date: 20170315
  Receipt Date: 20170315
  Transmission Date: 20170428
  Serious: No
  Sender: FDA-Public Use
  Company Number: PHEH2017US006968

PATIENT
  Age: 68 Year

DRUGS (1)
  1. ENTRESTO [Suspect]
     Active Substance: SACUBITRIL\VALSARTAN
     Indication: CARDIAC FAILURE
     Dosage: 50 MG, BID
     Route: 048
     Dates: start: 20170303

REACTIONS (4)
  - Lethargy [Unknown]
  - Feeling abnormal [Unknown]
  - Disturbance in attention [Unknown]
  - Dizziness [Unknown]

NARRATIVE: CASE EVENT DATE: 20170305
